FAERS Safety Report 8005131-5 (Version None)
Quarter: 2011Q4

REPORT INFORMATION
  Report Type: 
  Country: None (occurrence: None)
  Receive Date: 20111223
  Receipt Date: 20111214
  Transmission Date: 20120403
  Serious: Yes (Disabling, Other)
  Sender: FDA-Public Use
  Company Number: PHHY2011BR109159

PATIENT
  Age: 61 Year
  Sex: Male

DRUGS (1)
  1. TEGRETOL [Suspect]
     Indication: TRIGEMINAL NEURALGIA
     Dosage: 200 MG, HALF TABLET, 4 TIMES DAILY
     Route: 048

REACTIONS (2)
  - HYPOKINESIA [None]
  - PARALYSIS [None]
